FAERS Safety Report 5499178-0 (Version None)
Quarter: 2007Q4

REPORT INFORMATION
  Report Type: 
  Country: None (occurrence: None)
  Receive Date: 20071026
  Receipt Date: 20071022
  Transmission Date: 20080405
  Serious: Yes (Other)
  Sender: FDA-Public Use
  Company Number: IT-BRISTOL-MYERS SQUIBB COMPANY-13951389

PATIENT
  Age: 74 Year
  Sex: Male

DRUGS (1)
  1. KENACORT [Suspect]
     Dosage: INTRAVITREAL INJECTION 4MG IN A VOLUME OF 0.1ML
     Route: 031

REACTIONS (1)
  - DETACHMENT OF RETINAL PIGMENT EPITHELIUM [None]
